FAERS Safety Report 25587436 (Version 3)
Quarter: 2025Q3

REPORT INFORMATION
  Report Type: Spontaneous
  Country: TR (occurrence: TR)
  Receive Date: 20250721
  Receipt Date: 20250728
  Transmission Date: 20251021
  Serious: Yes (Death, Life-Threatening, Hospitalization)
  Sender: PFIZER
  Company Number: TR-MLMSERVICE-20250710-PI567445-00306-1

PATIENT
  Age: 63 Year
  Sex: Female

DRUGS (4)
  1. METHYLPREDNISOLONE ACETATE [Suspect]
     Active Substance: METHYLPREDNISOLONE ACETATE
  2. MYCOPHENOLATE MOFETIL [Suspect]
     Active Substance: MYCOPHENOLATE MOFETIL
  3. TACROLIMUS [Suspect]
     Active Substance: TACROLIMUS
  4. VALGANCICLOVIR [Concomitant]
     Active Substance: VALGANCICLOVIR
     Indication: Antiviral prophylaxis

REACTIONS (4)
  - Bacteraemia [Fatal]
  - Escherichia bacteraemia [Fatal]
  - Enterococcal infection [Fatal]
  - Septic shock [Fatal]
